FAERS Safety Report 4795872-5 (Version None)
Quarter: 2005Q4

REPORT INFORMATION
  Report Type: 
  Country: None (occurrence: None)
  Receive Date: 20051012
  Receipt Date: 20050927
  Transmission Date: 20060501
  Serious: Yes (Hospitalization)
  Sender: FDA-Public Use
  Company Number: FRWYE012728SEP05

PATIENT
  Sex: Male

DRUGS (1)
  1. ENBREL [Suspect]
     Indication: ANKYLOSING SPONDYLITIS
     Dosage: UNKNOWN
     Route: 058
     Dates: end: 20050503

REACTIONS (7)
  - ABSCESS [None]
  - ANKYLOSING SPONDYLITIS [None]
  - ARTHRITIS BACTERIAL [None]
  - ATYPICAL MYCOBACTERIAL INFECTION [None]
  - CONDITION AGGRAVATED [None]
  - INFECTIVE TENOSYNOVITIS [None]
  - TENOSYNOVITIS [None]
